FAERS Safety Report 23150761 (Version 1)
Quarter: 2023Q4

REPORT INFORMATION
  Report Type: Report from Study
  Country: IT (occurrence: IT)
  Receive Date: 20231106
  Receipt Date: 20231106
  Transmission Date: 20240110
  Serious: Yes (Hospitalization)
  Sender: FDA-Public Use
  Company Number: None

PATIENT
  Age: 52 Year
  Sex: Female

DRUGS (3)
  1. TRIAZOLAM [Suspect]
     Active Substance: TRIAZOLAM
     Indication: Product used for unknown indication
     Dosage: ROUTE OF ADMINISTRATION: ORAL
     Route: 048
  2. FERINJECT [Concomitant]
     Active Substance: FERRIC CARBOXYMALTOSE
     Indication: Product used for unknown indication
     Dosage: UNIT DOSE : 1 DF
  3. TAVOR [Concomitant]
     Indication: Insomnia
     Dosage: UNIT DOSE : 2 DF

REACTIONS (5)
  - Disorientation [Recovering/Resolving]
  - Slow speech [Recovering/Resolving]
  - Confusional state [Recovering/Resolving]
  - Fatigue [Recovering/Resolving]
  - Drug abuse [Recovering/Resolving]

NARRATIVE: CASE EVENT DATE: 20231005
